FAERS Safety Report 5051117-2 (Version None)
Quarter: 2006Q3

REPORT INFORMATION
  Report Type: 
  Country: None (occurrence: None)
  Receive Date: 20060714
  Receipt Date: 20060704
  Transmission Date: 20061208
  Serious: Yes (Death, Life-Threatening, Hospitalization)
  Sender: FDA-Public Use
  Company Number: GB-JNJFOC-20060401801

PATIENT
  Sex: Male

DRUGS (4)
  1. RISPERDAL [Suspect]
     Indication: ANXIETY
     Route: 048
  2. RISPERDAL [Suspect]
     Indication: ASPERGER'S DISORDER
     Route: 048
  3. CARBAMAZEPINE [Concomitant]
     Indication: AGITATION
     Route: 048
  4. LORAZEPAM [Concomitant]
     Indication: AGITATION
     Route: 048

REACTIONS (6)
  - CANDIDA SEPSIS [None]
  - CEREBROVASCULAR ACCIDENT [None]
  - DIABETES MELLITUS INSULIN-DEPENDENT [None]
  - DIABETIC KETOACIDOSIS [None]
  - PHARYNGOLARYNGEAL PAIN [None]
  - RENAL FAILURE ACUTE [None]
